APPROVED DRUG PRODUCT: NAROPIN
Active Ingredient: ROPIVACAINE HYDROCHLORIDE
Strength: 500MG/100ML (5MG/ML)
Dosage Form/Route: SOLUTION;INJECTION
Application: N020533 | Product #009 | TE Code: AP
Applicant: FRESENIUS KABI USA LLC
Approved: Jan 4, 2011 | RLD: Yes | RS: No | Type: RX